FAERS Safety Report 25676624 (Version 1)
Quarter: 2025Q3

REPORT INFORMATION
  Report Type: Spontaneous
  Country: US (occurrence: None)
  Receive Date: 20250812
  Receipt Date: 20250812
  Transmission Date: 20251020
  Serious: Yes (Other)
  Sender: FDA-CTU
  Company Number: None

PATIENT
  Age: 37 Year
  Sex: Female
  Weight: 78 kg

DRUGS (1)
  1. XCOPRI [Suspect]
     Active Substance: CENOBAMATE
     Dosage: 100 MG DAILY ORAL ?
     Route: 048
     Dates: start: 20250611, end: 20250725

REACTIONS (2)
  - Drug hypersensitivity [None]
  - Drug reaction with eosinophilia and systemic symptoms [None]

NARRATIVE: CASE EVENT DATE: 20250725
